FAERS Safety Report 9046207 (Version 1)
Quarter: 2013Q1

REPORT INFORMATION
  Report Type: Spontaneous
  Country: FR (occurrence: FR)
  Receive Date: 20130201
  Receipt Date: 20130201
  Transmission Date: 20140127
  Serious: Yes (Hospitalization)
  Sender: FDA-Public Use
  Company Number: FR-BAYER-2013-012505

PATIENT
  Age: 52 Year
  Sex: Female

DRUGS (9)
  1. IZILOX [Suspect]
     Indication: BRONCHITIS
     Dosage: 1 DF, UNK
     Route: 048
     Dates: start: 20121006, end: 20121006
  2. GLUCOPHAGE [Concomitant]
     Dosage: 850 MG, UNK
  3. GLICLAZIDE [Concomitant]
     Dosage: 30 MG, UNK
  4. GLUCOR [Concomitant]
     Dosage: UNK
  5. TENORMINE [Concomitant]
     Dosage: 50 MG, UNK
  6. CRESTOR [Concomitant]
     Dosage: 20 MG, UNK
  7. AEROSOL THERAPY (GOMENOL (MELALEUCA VIRIDIFLORA OIL) [Concomitant]
     Dosage: UNK
  8. NETROMICINE [Concomitant]
     Dosage: UNK
  9. BETNESOL [Concomitant]
     Dosage: UNK
     Dates: start: 20121006

REACTIONS (2)
  - Respiratory distress [Recovered/Resolved]
  - Pruritus [Recovered/Resolved]
